FAERS Safety Report 8207622-0 (Version None)
Quarter: 2012Q1

REPORT INFORMATION
  Report Type: 
  Country: None (occurrence: None)
  Receive Date: 20120314
  Receipt Date: 20120314
  Transmission Date: 20120608
  Serious: Yes (Other)
  Sender: FDA-Public Use
  Company Number: None

PATIENT
  Sex: Female

DRUGS (1)
  1. LEVAQUIN [Suspect]
     Dates: start: 19970101, end: 20070207

REACTIONS (11)
  - MUSCULAR WEAKNESS [None]
  - VOMITING [None]
  - INFECTION [None]
  - FATIGUE [None]
  - LOSS OF EMPLOYMENT [None]
  - JOINT DISLOCATION [None]
  - JOINT LOCK [None]
  - ARTHRALGIA [None]
  - AMNESIA [None]
  - MUSCLE SPASMS [None]
  - DYSPNOEA [None]
